FAERS Safety Report 22037462 (Version 2)
Quarter: 2023Q1

REPORT INFORMATION
  Report Type: Report from Study
  Country: JP (occurrence: JP)
  Receive Date: 20230226
  Receipt Date: 20230306
  Transmission Date: 20230418
  Serious: Yes (Hospitalization)
  Sender: FDA-Public Use
  Company Number: JP-REGENERON PHARMACEUTICALS, INC.-2023-019026

PATIENT
  Age: 77 Year
  Sex: Male

DRUGS (16)
  1. CEMIPLIMAB [Suspect]
     Active Substance: CEMIPLIMAB
     Indication: Lung adenocarcinoma stage III
     Dosage: 350 MG, Q3W
     Route: 042
     Dates: start: 20230118
  2. CARBOPLATIN [Suspect]
     Active Substance: CARBOPLATIN
     Indication: Lung adenocarcinoma stage III
     Dosage: AUC OF 5 OR 6 MG/ML/MINUTE Q3W
     Route: 042
     Dates: start: 20230118, end: 20230118
  3. PEMETREXED [Suspect]
     Active Substance: PEMETREXED
     Indication: Lung adenocarcinoma stage III
     Dosage: 500 MG/M2, Q3W
     Route: 042
     Dates: start: 20230118, end: 20230118
  4. AMLODIPINE BESYLATE\IRBESARTAN [Concomitant]
     Active Substance: AMLODIPINE BESYLATE\IRBESARTAN
     Indication: Hypertension
     Dosage: 1 {DF}, QD
     Route: 048
     Dates: end: 20230117
  5. ETIZOLAM [Concomitant]
     Active Substance: ETIZOLAM
     Indication: Sleep disorder
     Dosage: 0.5 MG, QD
     Route: 048
     Dates: end: 20230122
  6. INDACATEROL [Concomitant]
     Active Substance: INDACATEROL
     Indication: Chronic obstructive pulmonary disease
     Dosage: 1 {DF}, QD
     Dates: start: 20221205
  7. VITAMINS [Concomitant]
     Active Substance: VITAMINS
     Indication: Prophylaxis
     Dosage: 1 G, QD
     Route: 048
     Dates: start: 20221227
  8. HYDROXOCOBALAMIN [Concomitant]
     Active Substance: HYDROXOCOBALAMIN
     Indication: Prophylaxis
     Dosage: 1 ML, Q9WK
     Route: 030
     Dates: start: 20221227
  9. MAGNESIUM OXIDE [Concomitant]
     Active Substance: MAGNESIUM OXIDE
     Indication: Constipation
     Dosage: 330 MG, AS NECESSARY
     Route: 048
     Dates: end: 20230122
  10. PALONOSETRON [Concomitant]
     Active Substance: PALONOSETRON
     Indication: Prophylaxis
     Dosage: 0.75 MG, Q3W
     Route: 042
     Dates: start: 20230118
  11. DEXAMETHASONE SODIUM PHOSPHATE [Concomitant]
     Active Substance: DEXAMETHASONE SODIUM PHOSPHATE
     Indication: Prophylaxis
     Dosage: 6.6 MG, Q3W
     Route: 042
     Dates: start: 20230118
  12. DECADRON [Concomitant]
     Active Substance: DEXAMETHASONE
     Indication: Prophylaxis
     Dosage: 8 MG, TWICE EVERY 3 WEEKS
     Route: 048
     Dates: start: 20230119
  13. SENNOSIDES [Concomitant]
     Active Substance: SENNOSIDES
     Indication: Constipation
     Dosage: 24 MG, AS NECESSARY
     Route: 048
     Dates: start: 20230120, end: 20230126
  14. SODIUM BICARBONATE\SODIUM PHOSPHATE, MONOBASIC [Concomitant]
     Active Substance: SODIUM BICARBONATE\SODIUM PHOSPHATE, MONOBASIC
     Indication: Constipation
     Dosage: 1 {DF}, AS NECESSARY
     Route: 054
     Dates: start: 20230122, end: 20230122
  15. IRBESARTAN [Concomitant]
     Active Substance: IRBESARTAN
     Indication: Hypertension
     Dosage: 100 MG, QD
     Route: 048
     Dates: start: 20230118, end: 20230123
  16. AMLODIPINE [Concomitant]
     Active Substance: AMLODIPINE BESYLATE
     Indication: Hypertension
     Dosage: 5 MG, QD
     Route: 048
     Dates: start: 20230118

REACTIONS (2)
  - Renal impairment [Recovering/Resolving]
  - Hyponatraemia [Recovered/Resolved]

NARRATIVE: CASE EVENT DATE: 20230123
